FAERS Safety Report 13080768 (Version 2)
Quarter: 2017Q1

REPORT INFORMATION
  Report Type: Spontaneous
  Country: BR (occurrence: BR)
  Receive Date: 20170103
  Receipt Date: 20170112
  Transmission Date: 20170428
  Serious: Yes (Other)
  Sender: FDA-Public Use
  Company Number: BR-PFIZER INC-2016603692

PATIENT
  Age: 68 Year
  Sex: Male
  Weight: 74 kg

DRUGS (2)
  1. XALATAN [Suspect]
     Active Substance: LATANOPROST
     Indication: GLAUCOMA
     Dosage: 2 GTT, 1X/DAY
     Route: 047
     Dates: start: 2000
  2. XALATAN [Suspect]
     Active Substance: LATANOPROST
     Dosage: 1 DROP AT NIGHT
     Route: 047
     Dates: start: 2010

REACTIONS (2)
  - Atrial fibrillation [Unknown]
  - Cataract [Unknown]
